FAERS Safety Report 15575514 (Version 2)
Quarter: 2022Q4

REPORT INFORMATION
  Report Type: Report from Study
  Country: ES (occurrence: ES)
  Receive Date: 20181101
  Receipt Date: 20221121
  Transmission Date: 20230113
  Serious: Yes (Hospitalization)
  Sender: FDA-Public Use
  Company Number: ES-KYOWAKIRIN-2018BKK001419

PATIENT
  Age: 55 Year
  Sex: Female

DRUGS (29)
  1. FENTANYL [Suspect]
     Active Substance: FENTANYL
     Indication: Analgesic therapy
     Dosage: 150 MCG, Q3D (EVERY 72 H)
     Route: 065
     Dates: start: 201711
  2. FENTANYL [Suspect]
     Active Substance: FENTANYL
     Dosage: 25 MCG/H (STOP DATE: 2017)
     Route: 065
     Dates: start: 201702
  3. FENTANYL [Suspect]
     Active Substance: FENTANYL
     Indication: Analgesic therapy
     Dosage: 400 MCG, 2 IN MORNING, 1 OR 2 IN EVENING/NIGHT
     Route: 045
     Dates: start: 2017
  4. FENTANYL [Suspect]
     Active Substance: FENTANYL
     Indication: Breakthrough pain
     Dosage: 400 MCG, PER DOSE (STOP DATE: 2017)
     Route: 045
     Dates: start: 201711
  5. FENTANYL [Suspect]
     Active Substance: FENTANYL
     Indication: Analgesic therapy
     Dosage: UP TO 600 MCG, RESCUES (STOP DATE: 2017)
     Route: 060
     Dates: start: 201711
  6. FENTANYL [Suspect]
     Active Substance: FENTANYL
     Indication: Breakthrough pain
     Dosage: 200 MCG, RESCUE (STOP DATE: 2017)
     Route: 060
     Dates: start: 201702
  7. MORPHINE SULFATE [Suspect]
     Active Substance: MORPHINE SULFATE
     Indication: Pain
     Dosage: 200 MG IN MORNING, 160 MG IN EVENING
     Route: 048
     Dates: start: 201711, end: 201711
  8. MORPHINE SULFATE [Suspect]
     Active Substance: MORPHINE SULFATE
     Indication: Breakthrough pain
     Dosage: 300 MG, BID (STOP DATE: 2017)
     Route: 048
     Dates: start: 201711
  9. MORPHINE SULFATE [Suspect]
     Active Substance: MORPHINE SULFATE
     Dosage: 200 MG, BID
     Route: 048
     Dates: start: 201711, end: 201711
  10. MORPHINE SULFATE [Suspect]
     Active Substance: MORPHINE SULFATE
     Dosage: CONTINUOUS INFUSION PUMP
     Route: 058
  11. MORPHINE SULFATE [Suspect]
     Active Substance: MORPHINE SULFATE
     Dosage: 160 MG, BID
     Route: 048
     Dates: start: 201711, end: 201711
  12. MORPHINE SULFATE [Suspect]
     Active Substance: MORPHINE SULFATE
     Dosage: 30 MG, IF FENTANYL WAS INSUFFICIENT
     Route: 058
     Dates: start: 201711
  13. MORPHINE SULFATE [Suspect]
     Active Substance: MORPHINE SULFATE
     Dosage: 20 MG,EVERY 4 HOURS IF SHE PRESENTED BREKTHR PAIN
     Route: 048
     Dates: start: 201711
  14. MORPHINE SULFATE [Suspect]
     Active Substance: MORPHINE SULFATE
     Dosage: 260 MG, BID
     Route: 048
     Dates: start: 201711, end: 201711
  15. MORPHINE SULFATE [Suspect]
     Active Substance: MORPHINE SULFATE
     Dosage: MORE THAN 5 DOSES OF 20 MG PER DAY
     Route: 048
  16. MORPHINE SULFATE [Suspect]
     Active Substance: MORPHINE SULFATE
     Dosage: 5 MG, UNK
     Route: 048
     Dates: start: 2017, end: 2017
  17. PEMBROLIZUMAB [Suspect]
     Active Substance: PEMBROLIZUMAB
     Indication: Non-small cell lung cancer metastatic
     Dosage: UNKNOWN
     Route: 065
     Dates: start: 2017
  18. CISPLATIN\PEMETREXED [Suspect]
     Active Substance: CISPLATIN\PEMETREXED
     Indication: Non-small cell lung cancer metastatic
     Dosage: UNKNOWN (STOP DATE: 2017)
     Route: 065
     Dates: start: 201702
  19. ATEZOLIZUMAB [Suspect]
     Active Substance: ATEZOLIZUMAB
     Indication: Non-small cell lung cancer metastatic
     Dosage: UNKNOWN
     Route: 065
     Dates: start: 2017
  20. CARBOPLATIN [Suspect]
     Active Substance: CARBOPLATIN
     Indication: Non-small cell lung cancer metastatic
     Dosage: UNKNOWN
     Route: 065
     Dates: start: 201711
  21. VINORELBINE [Suspect]
     Active Substance: VINORELBINE TARTRATE
     Indication: Non-small cell lung cancer metastatic
     Dosage: UNK
     Route: 065
     Dates: start: 201711
  22. MAGNESIUM HYDROXIDE [Concomitant]
     Active Substance: MAGNESIUM HYDROXIDE
     Indication: Product used for unknown indication
     Dosage: BETWEEN 1 AND 3 SACHETS PER DAY
     Route: 065
     Dates: start: 201711
  23. OLANZAPINE [Concomitant]
     Active Substance: OLANZAPINE
     Indication: Pruritus
     Dosage: UNK
     Route: 065
     Dates: start: 2017
  24. IBUPROFEN [Concomitant]
     Active Substance: IBUPROFEN
     Indication: Pain
     Dosage: 600 MILLIGRAM, Q8H (600 MG, Q8H)
     Route: 065
     Dates: start: 201711
  25. PREGABALIN [Concomitant]
     Active Substance: PREGABALIN
     Indication: Pain management
     Dosage: 300 MILLIGRAM, BID (300 MG, Q12H)
     Route: 065
     Dates: start: 201711
  26. OMEPRAZOLE [Concomitant]
     Active Substance: OMEPRAZOLE
     Indication: Product used for unknown indication
     Dosage: 20 MG/24 H
     Route: 065
  27. METAMIZOLE SODIUM [Concomitant]
     Active Substance: METAMIZOLE SODIUM
     Indication: Product used for unknown indication
     Dosage: 1.15 G, Q8H
     Route: 065
     Dates: end: 201711
  28. BROMAZEPAM [Concomitant]
     Active Substance: BROMAZEPAM
     Indication: Product used for unknown indication
     Dosage: 1.5 MG, QD
     Route: 065
     Dates: start: 201711
  29. GRANISETRON [Concomitant]
     Active Substance: GRANISETRON
     Indication: Product used for unknown indication
     Dosage: 1 MG, BID
     Route: 065
     Dates: start: 201711

REACTIONS (10)
  - Skin plaque [Unknown]
  - Oedema [Unknown]
  - Cognitive disorder [Unknown]
  - Pneumonitis [Unknown]
  - Constipation [Unknown]
  - Anxiety [Unknown]
  - Dry mouth [Unknown]
  - Insomnia [Unknown]
  - Nausea [Unknown]
  - Drug dose titration not performed [Unknown]
